FAERS Safety Report 16932220 (Version 1)
Quarter: 2019Q4

REPORT INFORMATION
  Report Type: Spontaneous
  Country: CN (occurrence: CN)
  Receive Date: 20191017
  Receipt Date: 20191017
  Transmission Date: 20200122
  Serious: Yes (Hospitalization)
  Sender: FDA-Public Use
  Company Number: CN-JNJFOC-20191011680

PATIENT
  Age: 35 Year
  Sex: Female
  Weight: 50 kg

DRUGS (3)
  1. GLYCYRRHIZIN                       /00467201/ [Concomitant]
     Indication: PROPHYLAXIS
     Dates: start: 20190828, end: 20190903
  2. SPORANOX [Suspect]
     Active Substance: ITRACONAZOLE
     Indication: FUNGAL INFECTION
     Dates: start: 20190828, end: 20190903
  3. SPORANOX [Suspect]
     Active Substance: ITRACONAZOLE
     Indication: PROPHYLAXIS

REACTIONS (2)
  - Haemorrhoids [Unknown]
  - Leukopenia [Recovering/Resolving]

NARRATIVE: CASE EVENT DATE: 20190906
